FAERS Safety Report 9805037 (Version 1)
Quarter: 2014Q1

REPORT INFORMATION
  Report Type: Spontaneous
  Country: US (occurrence: US)
  Receive Date: 20140109
  Receipt Date: 20140109
  Transmission Date: 20141002
  Serious: Yes (Hospitalization, Other)
  Sender: FDA-Public Use
  Company Number: US-ACCORD-021209

PATIENT
  Age: 37 Year
  Sex: Female

DRUGS (1)
  1. TOPOTECAN [Suspect]
     Indication: OVARIAN NEOPLASM
     Dosage: 28 DAY TREATMENT CYCLE INCLUDED INFUSION ON DAY 1, 8 AND 15.?FIRST TO FORTH CYCLE DOSE=2.96MG/M2, F

REACTIONS (2)
  - Acute febrile neutrophilic dermatosis [Recovered/Resolved]
  - Off label use [Unknown]
